FAERS Safety Report 8114182-1 (Version None)
Quarter: 2012Q1

REPORT INFORMATION
  Report Type: 
  Country: None (occurrence: None)
  Receive Date: 20120205
  Receipt Date: 20110418
  Transmission Date: 20120608
  Serious: No
  Sender: FDA-Public Use
  Company Number: US-ALLERGAN-1105410US

PATIENT
  Age: 89 Year
  Sex: Female

DRUGS (2)
  1. PRED FORTE [Suspect]
     Indication: CORNEAL TRANSPLANT
     Dosage: 1 GTT, TID
     Route: 047
     Dates: start: 20110223
  2. TIMOLOL MALEATE [Concomitant]
     Indication: GLAUCOMA
     Dosage: 1 GTT, BID
     Route: 047

REACTIONS (1)
  - EYELID EXFOLIATION [None]
